FAERS Safety Report 6905190-4 (Version None)
Quarter: 2010Q3

REPORT INFORMATION
  Report Type: 
  Country: None (occurrence: None)
  Receive Date: 20100804
  Receipt Date: 20100727
  Transmission Date: 20110219
  Serious: Yes (Other)
  Sender: FDA-Public Use
  Company Number: JP-EISAI INC.-E2090-01251-SPO-JP

PATIENT
  Sex: Female

DRUGS (2)
  1. EXCEGRAN [Suspect]
     Indication: EPILEPSY
     Route: 048
     Dates: start: 20100617, end: 20100712
  2. PHENYTOIN SODIUM [Concomitant]
     Indication: EPILEPSY
     Dates: start: 20100615, end: 20100616

REACTIONS (1)
  - TOXIC SKIN ERUPTION [None]
